FAERS Safety Report 18643695 (Version 1)
Quarter: 2020Q4

REPORT INFORMATION
  Report Type: Spontaneous
  Country: US (occurrence: US)
  Receive Date: 20201221
  Receipt Date: 20201221
  Transmission Date: 20210114
  Serious: Yes (Hospitalization)
  Sender: FDA-Public Use
  Company Number: None

PATIENT
  Age: 66 Year
  Sex: Male

DRUGS (11)
  1. PREVYMIS [Suspect]
     Active Substance: LETERMOVIR
     Indication: BONE MARROW TRANSPLANT
     Route: 048
  2. FUROSEMIDE. [Concomitant]
     Active Substance: FUROSEMIDE
     Dates: start: 20200417
  3. TACROLIMUS. [Concomitant]
     Active Substance: TACROLIMUS
     Dates: start: 20201216
  4. ISOSORB DIN [Concomitant]
     Dates: start: 20200914
  5. METOPROLOL. [Concomitant]
     Active Substance: METOPROLOL
     Dates: start: 20200421
  6. ALLOPURINOL. [Concomitant]
     Active Substance: ALLOPURINOL
     Dates: start: 20201009
  7. SPRIONOLACTONE [Concomitant]
     Dates: start: 20201012
  8. VITAMIN B-1 [Concomitant]
     Active Substance: THIAMINE HYDROCHLORIDE
     Dates: start: 20200417
  9. CYCLOSPORINE. [Concomitant]
     Active Substance: CYCLOSPORINE
     Dates: start: 20200420
  10. PRAVASTATIN. [Concomitant]
     Active Substance: PRAVASTATIN
     Dates: start: 20200901
  11. HYDRALAZINE [Concomitant]
     Active Substance: HYDRALAZINE HYDROCHLORIDE
     Dates: start: 20200927

REACTIONS (1)
  - Hospitalisation [None]

NARRATIVE: CASE EVENT DATE: 20201102
